FAERS Safety Report 12432058 (Version 1)
Quarter: 2016Q2

REPORT INFORMATION
  Report Type: Spontaneous
  Country: US (occurrence: None)
  Receive Date: 20160602
  Receipt Date: 20160602
  Transmission Date: 20160815
  Serious: Yes (Other)
  Sender: FDA-Public Use
  Company Number: None

PATIENT
  Age: 3 Year
  Sex: Male
  Weight: 16.78 kg

DRUGS (1)
  1. SMZ-TMP [Suspect]
     Active Substance: SULFAMETHOXAZOLE\TRIMETHOPRIM
     Indication: IMPETIGO
     Dosage: 115 TEASPOON(S) TWICE A DAY TAKEN BY MOUTH
     Route: 048
     Dates: start: 20160415, end: 20160421

REACTIONS (6)
  - Scab [None]
  - Thirst [None]
  - Abdominal pain upper [None]
  - Arthropod bite [None]
  - Impetigo [None]
  - Scratch [None]

NARRATIVE: CASE EVENT DATE: 20160526
